FAERS Safety Report 25530137 (Version 1)
Quarter: 2025Q3

REPORT INFORMATION
  Report Type: Spontaneous
  Country: GB (occurrence: GB)
  Receive Date: 20250708
  Receipt Date: 20250708
  Transmission Date: 20251020
  Serious: Yes (Other)
  Sender: ELI LILLY AND COMPANY
  Company Number: None

PATIENT
  Age: 49 Year
  Sex: Female
  Weight: 98 kg

DRUGS (3)
  1. MOUNJARO [Suspect]
     Active Substance: TIRZEPATIDE
     Indication: Weight control
     Dosage: 2.5 MG, ONCE A WEEK IN THE MORNING
     Route: 065
     Dates: start: 20250511
  2. MOUNJARO [Suspect]
     Active Substance: TIRZEPATIDE
     Dosage: 2.5 MG, ONCE A WEEK IN THE MORNING
     Route: 065
  3. LOSARTAN POTASSIUM [Concomitant]
     Active Substance: LOSARTAN POTASSIUM
     Indication: Hypertension
     Route: 065

REACTIONS (4)
  - Flank pain [Not Recovered/Not Resolved]
  - Inflammation [Unknown]
  - Pyrexia [Unknown]
  - Injection site pain [Unknown]

NARRATIVE: CASE EVENT DATE: 20250511
